FAERS Safety Report 8012293-2 (Version None)
Quarter: 2011Q4

REPORT INFORMATION
  Report Type: 
  Country: None (occurrence: None)
  Receive Date: 20111228
  Receipt Date: 20111222
  Transmission Date: 20120403
  Serious: Yes (Other)
  Sender: FDA-Public Use
  Company Number: CN-PFIZER INC-2011310876

PATIENT
  Sex: Female

DRUGS (4)
  1. MEDROL [Suspect]
     Dosage: 12 TABLETS
     Route: 048
     Dates: start: 20110101, end: 20110101
  2. MEDROL [Suspect]
     Dosage: 8 TABLETS
     Route: 048
     Dates: start: 20110101
  3. SOLU-MEDROL [Suspect]
     Indication: BLOOD BILIRUBIN INCREASED
     Dosage: UNK
     Dates: start: 20110101, end: 20110101
  4. MEDROL [Suspect]
     Indication: BLOOD BILIRUBIN INCREASED
     Dosage: 13 TABLETS
     Route: 048
     Dates: start: 20110101, end: 20110101

REACTIONS (4)
  - ABSCESS LIMB [None]
  - UVEITIS [None]
  - CENTRAL OBESITY [None]
  - CUSHINGOID [None]
